FAERS Safety Report 8868701 (Version 1)
Quarter: 2012Q4

REPORT INFORMATION
  Report Type: 
  Country: US (occurrence: US)
  Receive Date: 20121024
  Receipt Date: 20121024
  Transmission Date: 20130627
  Serious: Yes (Hospitalization, Other)
  Sender: FDA-Public Use
  Company Number: US-ASTRAZENECA-2012SE79542

PATIENT
  Age: 56 Year
  Sex: Male
  Weight: 88.9 kg

DRUGS (10)
  1. LISINOPRIL [Suspect]
     Route: 048
     Dates: start: 20110817
  2. CRESTOR [Suspect]
     Route: 048
  3. LIPITOR [Suspect]
     Route: 065
  4. UNSPECIFIED INGREDIENT [Suspect]
     Route: 065
  5. ALPRAZOLAM [Concomitant]
     Dosage: ONE TABLET TWICE DAILY AS NEEDED
     Dates: start: 20120510
  6. GUAIATUSSIN AC [Concomitant]
     Dosage: 100 MG /5 ML TAKE 5-10 ML EVERY FOUR HOURS
     Route: 048
     Dates: start: 20111229
  7. ASPIRIN [Concomitant]
     Route: 048
     Dates: start: 20110718
  8. VIAGRA [Concomitant]
     Dosage: AS DIRECTED
     Dates: start: 20090609
  9. FISH OIL [Concomitant]
  10. VITAMIN D3 [Concomitant]
     Dosage: 1000 UNIT, ONE CAPSULE EVERYDAY
     Route: 048

REACTIONS (13)
  - Cataract [Unknown]
  - Acute myocardial infarction [Unknown]
  - Bradycardia [Unknown]
  - Chest pain [Unknown]
  - Dyslipidaemia [Unknown]
  - Contusion [Unknown]
  - Hyperlipidaemia [Unknown]
  - Hypertension [Unknown]
  - Left ventricular dysfunction [Unknown]
  - Myalgia [Unknown]
  - Liver function test abnormal [Unknown]
  - Weight increased [Unknown]
  - Dizziness [Unknown]
